FAERS Safety Report 5331709-3 (Version None)
Quarter: 2007Q2

REPORT INFORMATION
  Report Type: 
  Country: None (occurrence: None)
  Receive Date: 20070516
  Receipt Date: 20070504
  Transmission Date: 20071010
  Serious: Yes (Other)
  Sender: FDA-Public Use
  Company Number: 16431

PATIENT
  Age: 33 Year
  Sex: Male

DRUGS (3)
  1. PHYSOSTIGMINE [Suspect]
     Indication: COMA
     Dosage: 1 MG FREQ IV
     Route: 042
  2. GAMMA-HYDROXYBUTYRATE [Suspect]
  3. ATROPINE [Concomitant]

REACTIONS (10)
  - AMNESIA [None]
  - ATRIAL FIBRILLATION [None]
  - CHOLINERGIC SYNDROME [None]
  - COMA [None]
  - DRUG INTERACTION [None]
  - DRUG TOXICITY [None]
  - HEART RATE INCREASED [None]
  - HYPERHIDROSIS [None]
  - LOSS OF CONSCIOUSNESS [None]
  - SUBSTANCE ABUSE [None]
